FAERS Safety Report 11049472 (Version 2)
Quarter: 2015Q2

REPORT INFORMATION
  Report Type: Spontaneous
  Country: US (occurrence: US)
  Receive Date: 20150420
  Receipt Date: 20150617
  Transmission Date: 20150821
  Serious: Yes (Hospitalization)
  Sender: FDA-Public Use
  Company Number: US-B.I. PHARMACEUTICALS,INC./RIDGEFIELD-2015-BI-19974BP

PATIENT
  Age: 78 Year
  Sex: Male
  Weight: 138.1 kg

DRUGS (1)
  1. COMBIVENT [Suspect]
     Active Substance: ALBUTEROL SULFATE\IPRATROPIUM BROMIDE
     Indication: CHRONIC OBSTRUCTIVE PULMONARY DISEASE
     Dosage: FORMULATION: METERED DOSE INHALER (MDI)STRENGTH: 20 MCG /100 MCG
     Route: 055
     Dates: start: 2013

REACTIONS (5)
  - Pneumonia [Recovered/Resolved]
  - Anxiety [Recovered/Resolved]
  - Emphysema [Unknown]
  - Dyspnoea [Recovered/Resolved]
  - Anxiety [Not Recovered/Not Resolved]

NARRATIVE: CASE EVENT DATE: 201411
